FAERS Safety Report 6038931-1 (Version None)
Quarter: 2009Q1

REPORT INFORMATION
  Report Type: 
  Country: None (occurrence: None)
  Receive Date: 20090114
  Receipt Date: 20090114
  Transmission Date: 20090719
  Serious: No
  Sender: FDA-Public Use
  Company Number: None

PATIENT
  Age: 62 Year
  Sex: Male
  Weight: 90.7194 kg

DRUGS (2)
  1. LEVAQUIN [Suspect]
     Indication: INFECTION
     Dosage: ONE TABLET ONCE/DAY BUCCAL
     Route: 002
     Dates: start: 20080109, end: 20080109
  2. LEVAQUIN [Suspect]
     Indication: INFECTION
     Dosage: ONE TABLET ONCE/DAY BUCCAL
     Route: 002
     Dates: start: 20081117, end: 20081121

REACTIONS (2)
  - CONSTIPATION [None]
  - LIP SWELLING [None]
